FAERS Safety Report 20700957 (Version 1)
Quarter: 2022Q2

REPORT INFORMATION
  Report Type: Spontaneous
  Country: US (occurrence: None)
  Receive Date: 20220411
  Receipt Date: 20220411
  Transmission Date: 20220720
  Serious: No
  Sender: FDA-Public Use
  Company Number: None

PATIENT
  Age: 31 Year
  Sex: Female
  Weight: 121.56 kg

DRUGS (2)
  1. INFLECTRA [Suspect]
     Active Substance: INFLIXIMAB-DYYB
     Indication: Ankylosing spondylitis
     Dosage: OTHER FREQUENCY : EVERY 6 WKS;?
     Route: 042
     Dates: start: 201810
  2. SODIUM CHLORIDE [Suspect]
     Active Substance: SODIUM CHLORIDE
     Indication: Ankylosing spondylitis
     Dosage: OTHER QUANTITY : USE W/INFLECTRA IN;?
     Dates: start: 201812

REACTIONS (1)
  - Migraine [None]
